FAERS Safety Report 7893352-1 (Version None)
Quarter: 2011Q4

REPORT INFORMATION
  Report Type: 
  Country: None (occurrence: None)
  Receive Date: 20111104
  Receipt Date: 20111101
  Transmission Date: 20120403
  Serious: Yes (Hospitalization)
  Sender: FDA-Public Use
  Company Number: CA-PFIZER INC-2006134964

PATIENT
  Age: 75 Year
  Sex: Male
  Weight: 76 kg

DRUGS (7)
  1. METOPROLOL [Suspect]
     Dosage: UNK
     Route: 048
     Dates: start: 20060707, end: 20061027
  2. CODEINE SULFATE [Concomitant]
     Route: 048
     Dates: start: 20030701
  3. AVAPRO [Concomitant]
     Route: 048
     Dates: start: 19960101
  4. VITAMIN D [Concomitant]
     Route: 048
     Dates: start: 20051101
  5. RABEPRAZOLE SODIUM [Concomitant]
     Route: 048
     Dates: start: 20060726
  6. FISH OIL [Concomitant]
     Route: 048
     Dates: start: 20051101
  7. SUNITINIB MALATE [Suspect]
     Indication: GASTROINTESTINAL STROMAL TUMOUR
     Dosage: 50 MG,DAILY,  4 WEEKS ON/2 WEEKS OFF
     Route: 048
     Dates: start: 20060607, end: 20061025

REACTIONS (1)
  - RENAL FAILURE ACUTE [None]
